FAERS Safety Report 7055540-6 (Version None)
Quarter: 2010Q4

REPORT INFORMATION
  Report Type: 
  Country: None (occurrence: None)
  Receive Date: 20101019
  Receipt Date: 20101019
  Transmission Date: 20110411
  Serious: No
  Sender: FDA-Public Use
  Company Number: None

PATIENT
  Age: 28 Year
  Sex: Male
  Weight: 111.1313 kg

DRUGS (2)
  1. OXYCONTIN [Suspect]
     Indication: INTRACRANIAL PRESSURE INCREASED
     Dosage: 40 MG ONE TAB BID PO
     Route: 048
  2. OXYCONTIN [Suspect]
     Indication: INTRACRANIAL PRESSURE INCREASED
     Dosage: 20 MG ONE TAB BID / PRN PO
     Route: 048

REACTIONS (11)
  - ABDOMINAL PAIN UPPER [None]
  - CONDITION AGGRAVATED [None]
  - CONSTIPATION [None]
  - DIZZINESS [None]
  - FEELING ABNORMAL [None]
  - FLATULENCE [None]
  - HEADACHE [None]
  - NAUSEA [None]
  - NO THERAPEUTIC RESPONSE [None]
  - PAIN [None]
  - PRODUCT QUALITY ISSUE [None]
